FAERS Safety Report 19157720 (Version 1)
Quarter: 2021Q2

REPORT INFORMATION
  Report Type: Spontaneous
  Country: CA (occurrence: CA)
  Receive Date: 20210420
  Receipt Date: 20210420
  Transmission Date: 20210717
  Serious: Yes (Hospitalization)
  Sender: FDA-Public Use
  Company Number: CA-MYLANLABS-2021M1022900

PATIENT
  Age: 83 Year
  Sex: Male
  Weight: 77 kg

DRUGS (2)
  1. MYLAN?BUDESONIDE AQ [Suspect]
     Active Substance: BUDESONIDE
     Indication: SINUS POLYP
     Dosage: 2 DOSAGE FORM, BID (2 EVERY 1 DAYS)
     Route: 065
  2. MYLAN?BUDESONIDE AQ [Suspect]
     Active Substance: BUDESONIDE
     Indication: SINUS CONGESTION

REACTIONS (1)
  - Sputum increased [Not Recovered/Not Resolved]
